FAERS Safety Report 20729768 (Version 1)
Quarter: 2022Q2

REPORT INFORMATION
  Report Type: Spontaneous
  Country: US (occurrence: US)
  Receive Date: 20220420
  Receipt Date: 20220420
  Transmission Date: 20220721
  Serious: No
  Sender: FDA-Public Use
  Company Number: US-TEVA-2022-US-2021610

PATIENT
  Age: 46 Year
  Sex: Female
  Weight: 61.23 kg

DRUGS (6)
  1. AUSTEDO [Suspect]
     Active Substance: DEUTETRABENAZINE
     Indication: Tardive dyskinesia
     Dosage: 12 MILLIGRAM DAILY;
     Dates: start: 202203
  2. AUSTEDO [Suspect]
     Active Substance: DEUTETRABENAZINE
     Indication: Dystonia
  3. KLONOPIN [Concomitant]
     Active Substance: CLONAZEPAM
     Indication: Tardive dyskinesia
  4. GABAPENTIN [Concomitant]
     Active Substance: GABAPENTIN
     Indication: Tardive dyskinesia
  5. NORETHINDRONE [Concomitant]
     Active Substance: NORETHINDRONE
     Indication: Hereditary angioedema
  6. ADDERALL [Concomitant]
     Active Substance: AMPHETAMINE ASPARTATE\AMPHETAMINE SULFATE\DEXTROAMPHETAMINE SACCHARATE\DEXTROAMPHETAMINE SULFATE

REACTIONS (1)
  - Dyskinesia [Not Recovered/Not Resolved]

NARRATIVE: CASE EVENT DATE: 20220301
